FAERS Safety Report 9631471 (Version 1)
Quarter: 2013Q4

REPORT INFORMATION
  Report Type: Spontaneous
  Country: CH (occurrence: None)
  Receive Date: 20131016
  Receipt Date: 20131016
  Transmission Date: 20140711
  Serious: Yes (Life-Threatening, Other)
  Sender: FDA-Public Use
  Company Number: 20130532

PATIENT
  Age: 52 Year
  Sex: Female

DRUGS (26)
  1. VENOFER [Suspect]
     Indication: IRON DEFICIENCY ANAEMIA
     Dosage: 2 VIALS, 2 TOTAL
     Dates: start: 20130726, end: 20130810
  2. REMICADE [Suspect]
     Indication: CROHN^S DISEASE
     Dosage: 2 TOTAL
     Route: 040
     Dates: start: 20130726, end: 20130810
  3. ACTISKENAN (MORPHINE SULFATE) [Concomitant]
  4. ATARAX (HYDROXYZINE) [Concomitant]
  5. CACIT D3(COLECALCIFEROL, COLECALCIFEROL CARBONATE CALCIUM) [Concomitant]
  6. CARNEVIT(VITAMINS NOS, RETINOL, CHOLECALCIFEROL, ASCORBIC ACID, THIAMINE RIBOFLAVIN...) [Concomitant]
  7. CORTANCYL(PREDNISONE) [Concomitant]
  8. DECAN(DEXAMETHASONE, FERRIC GLUCONATE, COPPER GLUCONATE, MANAGANESE GLUCONATE, ZINC...) [Concomitant]
  9. DIFFU K(POTASSIUM CHLORIDE) [Concomitant]
  10. DOLIPRANE(PARACETAMOL) [Concomitant]
  11. DUROGESIC(FENTANYL) [Concomitant]
  12. EFFENTORA(FENTANYL CITRATE) [Concomitant]
  13. ELUDRIL(CHLOROBUTANOL, GLUCONATE CHLORHEXIDINE) [Concomitant]
  14. FUNGIZONE(AMPHOTERICIN B) [Concomitant]
  15. IMODIUM(LOPERAMIDE HYDROCHLORIDE,LOPERAMIDE) [Concomitant]
  16. LAROXYL(AMITRIPTYLINE HYDROCHLORIDE, AMITRIPTYLINE) [Concomitant]
  17. LOVENOX(ENOXAPARIN SODIUM) [Concomitant]
  18. MODULEN IBD(NUTRITIVE FEED) [Concomitant]
  19. SELENIUM(SELENIUM) [Concomitant]
  20. SEROPLEX(ESCITALOPRAM OXALATE) [Concomitant]
  21. SMOFKABIVEN(NUTRITIVE MIXTURE, ZINC SULPHATE HEPTAHYDRATE) [Concomitant]
  22. SPIRIVA(TIOTROPIUM BROMIDE) [Concomitant]
  23. TAMOXIFEN(TAMOXIFEN) [Concomitant]
  24. TRIMEBUTINE(TRIMEBUTINE) [Concomitant]
  25. VENTOLINE(SALBUTAMOL) [Concomitant]
  26. ZOPICLONE(ZOPICLONE) [Concomitant]

REACTIONS (4)
  - Hypersensitivity [None]
  - Tachycardia [None]
  - Hypotension [None]
  - Rash [None]
